FAERS Safety Report 8204164-3 (Version None)
Quarter: 2012Q1

REPORT INFORMATION
  Report Type: 
  Country: None (occurrence: None)
  Receive Date: 20120313
  Receipt Date: 20120307
  Transmission Date: 20120608
  Serious: Yes (Hospitalization)
  Sender: FDA-Public Use
  Company Number: US-AMGEN-USASP2012015237

PATIENT
  Age: 50 Year
  Sex: Female

DRUGS (1)
  1. ENBREL [Suspect]
     Indication: RHEUMATOID ARTHRITIS
     Dosage: 25 MG, 2 TIMES/WK
     Dates: start: 20030601

REACTIONS (6)
  - ABDOMINAL MASS [None]
  - UTERINE LEIOMYOMA [None]
  - PYREXIA [None]
  - MENORRHAGIA [None]
  - THROMBOSIS [None]
  - ABDOMINAL INFECTION [None]
